FAERS Safety Report 24926732 (Version 3)
Quarter: 2025Q2

REPORT INFORMATION
  Report Type: Spontaneous
  Country: CA (occurrence: CA)
  Receive Date: 20250205
  Receipt Date: 20250415
  Transmission Date: 20250716
  Serious: Yes (Other)
  Sender: CELLTRION
  Company Number: CA-PFIZER INC-202400238653

PATIENT

DRUGS (22)
  1. INFLECTRA [Suspect]
     Active Substance: INFLIXIMAB-DYYB
     Indication: Psoriatic arthropathy
     Route: 042
     Dates: start: 20220420
  2. INFLECTRA [Suspect]
     Active Substance: INFLIXIMAB-DYYB
     Indication: Rheumatoid arthritis
     Route: 042
     Dates: start: 20240815
  3. INFLECTRA [Suspect]
     Active Substance: INFLIXIMAB-DYYB
     Route: 042
     Dates: start: 20241007
  4. INFLECTRA [Suspect]
     Active Substance: INFLIXIMAB-DYYB
     Route: 042
     Dates: start: 20241202
  5. INFLECTRA [Suspect]
     Active Substance: INFLIXIMAB-DYYB
     Route: 042
     Dates: start: 20250127
  6. INFLECTRA [Suspect]
     Active Substance: INFLIXIMAB-DYYB
     Route: 042
     Dates: start: 20250127
  7. FOLIC ACID [Concomitant]
     Active Substance: FOLIC ACID
  8. ACETAMINOPHEN [Concomitant]
     Active Substance: ACETAMINOPHEN
  9. DULOXETINE [Concomitant]
     Active Substance: DULOXETINE
  10. CHOLECALCIFEROL [Concomitant]
     Active Substance: CHOLECALCIFEROL
  11. CARBIDOPA\LEVODOPA [Concomitant]
     Active Substance: CARBIDOPA\LEVODOPA
  12. METHOTREXATE [Concomitant]
     Active Substance: METHOTREXATE
  13. PREDNISONE [Concomitant]
     Active Substance: PREDNISONE
  14. PANTOPRAZOLE [Concomitant]
     Active Substance: PANTOPRAZOLE
  15. RELAXA [ACETYLSALICYLIC ACID;ALUMINIUM HYDROXIDE;CODEINE;PARACETAMOL] [Concomitant]
  16. RESTASIS [Concomitant]
     Active Substance: CYCLOSPORINE
  17. MORPHINE SULFATE [Concomitant]
     Active Substance: MORPHINE SULFATE
  18. SYSTANE (HYPROMELLOSE 2910 (4000 MPA.S)) [Concomitant]
     Active Substance: HYPROMELLOSE 2910 (4000 MPA.S)
  19. TIAZAC [Concomitant]
     Active Substance: DILTIAZEM HYDROCHLORIDE
  20. VITAMIN B12 [Concomitant]
     Active Substance: CYANOCOBALAMIN
  21. VALACYCLOVIR [Concomitant]
     Active Substance: VALACYCLOVIR HYDROCHLORIDE
  22. ZOPICLONE [Concomitant]
     Active Substance: ZOPICLONE

REACTIONS (3)
  - Skin cancer [Not Recovered/Not Resolved]
  - Off label use [Unknown]
  - Intentional product use issue [Unknown]

NARRATIVE: CASE EVENT DATE: 20240815
